FAERS Safety Report 16862787 (Version 2)
Quarter: 2020Q3

REPORT INFORMATION
  Report Type: Spontaneous
  Country: US (occurrence: US)
  Receive Date: 20190927
  Receipt Date: 20200828
  Transmission Date: 20201102
  Serious: Yes (Other)
  Sender: FDA-Public Use
  Company Number: US-GILEAD-2019-0429688

PATIENT
  Sex: Male
  Weight: 65.31 kg

DRUGS (51)
  1. CHLORPROMAZINE. [Concomitant]
     Active Substance: CHLORPROMAZINE
  2. BREO ELLIPTA [Concomitant]
     Active Substance: FLUTICASONE FUROATE\VILANTEROL TRIFENATATE
  3. FENTANYL TRANSDERMAL SYSTEM [Concomitant]
     Active Substance: FENTANYL
  4. PROCHLORPERAZINE. [Concomitant]
     Active Substance: PROCHLORPERAZINE
  5. ZYRTEC [Concomitant]
     Active Substance: CETIRIZINE HYDROCHLORIDE
  6. KLOR?CON [Concomitant]
     Active Substance: POTASSIUM CHLORIDE
  7. MOMETASONE [Concomitant]
     Active Substance: MOMETASONE
  8. ROPINIROLE. [Concomitant]
     Active Substance: ROPINIROLE
  9. ZOLPIDEM [Concomitant]
     Active Substance: ZOLPIDEM TARTRATE
  10. LORAZEPAM. [Concomitant]
     Active Substance: LORAZEPAM
  11. AMITIZA [Concomitant]
     Active Substance: LUBIPROSTONE
  12. EPINEPHRINE. [Concomitant]
     Active Substance: EPINEPHRINE
  13. SODIUM BICARBONATE. [Concomitant]
     Active Substance: SODIUM BICARBONATE
  14. VENTOLIN [Concomitant]
     Active Substance: ALBUTEROL SULFATE
  15. DEXAMETHASONE. [Concomitant]
     Active Substance: DEXAMETHASONE
  16. VITAMIN D2 [Concomitant]
     Active Substance: ERGOCALCIFEROL
  17. OVARELL [Concomitant]
  18. SYMBICORT [Concomitant]
     Active Substance: BUDESONIDE\FORMOTEROL FUMARATE DIHYDRATE
  19. EFFEXOR [Concomitant]
     Active Substance: VENLAFAXINE HYDROCHLORIDE
  20. ATRIPLA [Suspect]
     Active Substance: EFAVIRENZ\EMTRICITABINE\TENOFOVIR DISOPROXIL FUMARATE
     Indication: HIV INFECTION
     Dosage: UNK
     Route: 048
     Dates: start: 2008, end: 2016
  21. CYCLOBENZAPRINE. [Concomitant]
     Active Substance: CYCLOBENZAPRINE
  22. DANAZOL. [Concomitant]
     Active Substance: DANAZOL
  23. VENLAFAXINE [Concomitant]
     Active Substance: VENLAFAXINE HYDROCHLORIDE
  24. PROMETHAZINE [Concomitant]
     Active Substance: PROMETHAZINE HYDROCHLORIDE
  25. PANTOPRAZOLE [Concomitant]
     Active Substance: PANTOPRAZOLE
  26. OXYCODONE [Concomitant]
     Active Substance: OXYCODONE
  27. MIDODRINE [Concomitant]
     Active Substance: MIDODRINE
  28. DIAZEPAM. [Concomitant]
     Active Substance: DIAZEPAM
  29. ZOFRAN [Concomitant]
     Active Substance: ONDANSETRON HYDROCHLORIDE
  30. LIVALO [Concomitant]
     Active Substance: PITAVASTATIN CALCIUM
  31. KETOCONAZOLE. [Concomitant]
     Active Substance: KETOCONAZOLE
  32. NADOLOL. [Concomitant]
     Active Substance: NADOLOL
  33. TIVICAY [Concomitant]
     Active Substance: DOLUTEGRAVIR SODIUM
  34. METHYLPREDNISOLONE. [Concomitant]
     Active Substance: METHYLPREDNISOLONE
  35. POTASSIUM [Concomitant]
     Active Substance: POTASSIUM
  36. EPIVIR [Concomitant]
     Active Substance: LAMIVUDINE
  37. CIPROFLOXACIN. [Concomitant]
     Active Substance: CIPROFLOXACIN
  38. HYDROMORPHONE [Concomitant]
     Active Substance: HYDROMORPHONE
  39. FLUCONAZOLE. [Concomitant]
     Active Substance: FLUCONAZOLE
  40. HYDROXYUREA. [Concomitant]
     Active Substance: HYDROXYUREA
  41. HYDROXYZINE [Concomitant]
     Active Substance: HYDROXYZINE HYDROCHLORIDE
  42. MONTELUKAST [Concomitant]
     Active Substance: MONTELUKAST SODIUM
  43. HYDROCHLOROTHIAZIDE. [Concomitant]
     Active Substance: HYDROCHLOROTHIAZIDE
  44. METOPROLOL. [Concomitant]
     Active Substance: METOPROLOL
  45. OMNARIS [Concomitant]
     Active Substance: CICLESONIDE
  46. CLINDAMYCIN. [Concomitant]
     Active Substance: CLINDAMYCIN
  47. VALACYCLOVIR [VALACICLOVIR HYDROCHLORIDE] [Concomitant]
     Active Substance: VALACYCLOVIR HYDROCHLORIDE
  48. ABACAVIR. [Concomitant]
     Active Substance: ABACAVIR
  49. PREDNISONE. [Concomitant]
     Active Substance: PREDNISONE
  50. ACIPHEX [Concomitant]
     Active Substance: RABEPRAZOLE SODIUM
  51. TRAMADOL. [Concomitant]
     Active Substance: TRAMADOL

REACTIONS (12)
  - Emotional distress [Not Recovered/Not Resolved]
  - Loss of personal independence in daily activities [Not Recovered/Not Resolved]
  - Quality of life decreased [Not Recovered/Not Resolved]
  - Economic problem [Not Recovered/Not Resolved]
  - Anhedonia [Not Recovered/Not Resolved]
  - Pain [Not Recovered/Not Resolved]
  - End stage renal disease [Unknown]
  - Decreased activity [Not Recovered/Not Resolved]
  - Chronic kidney disease [Not Recovered/Not Resolved]
  - Acute kidney injury [Recovered/Resolved]
  - Impaired work ability [Not Recovered/Not Resolved]
  - Anxiety [Not Recovered/Not Resolved]

NARRATIVE: CASE EVENT DATE: 2000
